FAERS Safety Report 5086539-7 (Version None)
Quarter: 2006Q3

REPORT INFORMATION
  Report Type: 
  Country: None (occurrence: None)
  Receive Date: 20060703
  Receipt Date: 20050930
  Transmission Date: 20061208
  Serious: No
  Sender: FDA-Public Use
  Company Number: 2005S1009766

PATIENT
  Age: 62 Year
  Sex: Female

DRUGS (9)
  1. CLOZAPINE [Suspect]
     Indication: SCHIZOPHRENIA, PARANOID TYPE
     Dosage: 200 MG;QD; PO
     Route: 048
     Dates: start: 20000601
  2. ARIPIPRAZOLE [Concomitant]
  3. ENBREL [Concomitant]
  4. FOLIC ACID [Concomitant]
  5. RANITIDINE HYDROCHLORIDE [Concomitant]
  6. OMEPRAZOLE [Concomitant]
  7. SETRALINE HCL [Concomitant]
  8. CELECOXIB [Concomitant]
  9. RISEDRONATE SODIUM [Concomitant]

REACTIONS (1)
  - LEUKOPENIA [None]
